FAERS Safety Report 8537513-7 (Version None)
Quarter: 2012Q3

REPORT INFORMATION
  Report Type: 
  Country: None (occurrence: None)
  Receive Date: 20120725
  Receipt Date: 20120718
  Transmission Date: 20120928
  Serious: Yes (Hospitalization, Other)
  Sender: FDA-Public Use
  Company Number: US-BAXTER-2012BAX011938

PATIENT
  Sex: Male

DRUGS (3)
  1. DIANEAL [Suspect]
     Indication: PERITONEAL DIALYSIS
     Route: 033
     Dates: start: 20091202
  2. DIANEAL [Suspect]
     Route: 033
     Dates: start: 20091202
  3. DIANEAL [Suspect]
     Route: 033
     Dates: start: 20091202

REACTIONS (2)
  - INFECTION [None]
  - BLOOD GLUCOSE INCREASED [None]
